FAERS Safety Report 5689827-6 (Version None)
Quarter: 2008Q1

REPORT INFORMATION
  Report Type: 
  Country: None (occurrence: None)
  Receive Date: 20080331
  Receipt Date: 20080331
  Transmission Date: 20080703
  Serious: Yes (Other)
  Sender: FDA-Public Use
  Company Number: None

PATIENT
  Age: 6 Year
  Sex: Female
  Weight: 30.391 kg

DRUGS (2)
  1. SINGULAIR [Suspect]
     Indication: COUGH
     Dosage: 5MG  DAILY
     Dates: start: 20070425, end: 20070811
  2. SINGULAIR [Suspect]
     Indication: SEASONAL ALLERGY
     Dosage: 5MG  DAILY
     Dates: start: 20070425, end: 20070811

REACTIONS (2)
  - ABNORMAL BEHAVIOUR [None]
  - AGITATION [None]
